FAERS Safety Report 12621533 (Version 1)
Quarter: 2016Q3

REPORT INFORMATION
  Report Type: Spontaneous
  Country: US (occurrence: US)
  Receive Date: 20160804
  Receipt Date: 20160804
  Transmission Date: 20161109
  Serious: Yes (Other)
  Sender: FDA-Public Use
  Company Number: US-DRREDDYS-USA/USA/16/0081808

PATIENT
  Sex: Female
  Weight: 62.14 kg

DRUGS (2)
  1. RAPAMUNE [Suspect]
     Active Substance: SIROLIMUS
     Indication: RENAL TRANSPLANT
     Route: 048
     Dates: start: 20010925
  2. SIROLIMUS. [Suspect]
     Active Substance: SIROLIMUS
     Indication: RENAL TRANSPLANT
     Route: 048
     Dates: start: 200109

REACTIONS (5)
  - Diverticulum [Unknown]
  - Pancreatitis [Unknown]
  - Aortic stenosis [Recovered/Resolved]
  - Diabetes mellitus [Unknown]
  - Cardiac murmur [Unknown]

NARRATIVE: CASE EVENT DATE: 2001
